FAERS Safety Report 14820167 (Version 1)
Quarter: 2018Q2

REPORT INFORMATION
  Report Type: Other
  Country: JP (occurrence: JP)
  Receive Date: 20180427
  Receipt Date: 20180427
  Transmission Date: 20180711
  Serious: Yes (Death, Other)
  Sender: FDA-Public Use
  Company Number: JP-ACTELION-A-CH2018-171221

PATIENT
  Age: 62 Year
  Sex: Female

DRUGS (1)
  1. OPSUMIT [Suspect]
     Active Substance: MACITENTAN
     Indication: PULMONARY HYPERTENSION
     Route: 048

REACTIONS (5)
  - Pleural effusion [Unknown]
  - Pulmonary tumour thrombotic microangiopathy [Unknown]
  - Malignant pleural effusion [Unknown]
  - Respiratory failure [Fatal]
  - Therapy non-responder [Unknown]
